FAERS Safety Report 8922091 (Version 1)
Quarter: 2012Q4

REPORT INFORMATION
  Report Type: 
  Country: GB (occurrence: GB)
  Receive Date: 20121126
  Receipt Date: 20121126
  Transmission Date: 20130627
  Serious: Yes (Other)
  Sender: FDA-Public Use
  Company Number: GB-009507513-1211GBR008441

PATIENT
  Sex: Male

DRUGS (1)
  1. FINASTERIDE [Suspect]
     Indication: BENIGN PROSTATIC HYPERPLASIA
     Route: 048

REACTIONS (4)
  - Blood urine present [Unknown]
  - Dysuria [Unknown]
  - Pollakiuria [Not Recovered/Not Resolved]
  - Urinary tract inflammation [Unknown]
